FAERS Safety Report 7526966-9 (Version None)
Quarter: 2011Q2

REPORT INFORMATION
  Report Type: 
  Country: None (occurrence: None)
  Receive Date: 20110606
  Receipt Date: 20040416
  Transmission Date: 20111010
  Serious: Yes (Death)
  Sender: FDA-Public Use
  Company Number: PHEH2004US04400

PATIENT
  Sex: Female

DRUGS (15)
  1. TYLENOL W/ CODEINE NO. 2 [Concomitant]
  2. MIRALAX [Concomitant]
  3. CLOZAPINE [Suspect]
     Dosage: 200 MG, QD
     Dates: start: 20040107
  4. BISACODYL [Concomitant]
  5. CLONAZEPAM [Concomitant]
  6. HYDROXYZINE [Concomitant]
  7. CLOZAPINE [Suspect]
     Dosage: 200 MG, QD
     Route: 048
  8. FUROSEMIDE [Concomitant]
  9. LACTASE [Concomitant]
  10. LOTENSIN [Concomitant]
  11. NORVASC [Concomitant]
  12. PREVACID [Concomitant]
  13. TYLENOL-500 [Concomitant]
  14. ALBUTEROL SULFATE AUTOHALER [Concomitant]
  15. IPRATROPIUM BROMIDE [Concomitant]

REACTIONS (1)
  - DEATH [None]
